FAERS Safety Report 8533123 (Version 2)
Quarter: 2012Q4

REPORT INFORMATION
  Report Type: Report from Study
  Country: DE (occurrence: DE)
  Receive Date: 20120427
  Receipt Date: 20121227
  Transmission Date: 20130627
  Serious: Yes (Hospitalization)
  Sender: FDA-Public Use
  Company Number: DE-TEVA-334808USA

PATIENT
  Age: 77 Year
  Sex: Female
  Weight: 97.5 kg

DRUGS (14)
  1. TREANDA [Suspect]
     Route: 042
     Dates: start: 20110405
  2. RITUXIMAB [Suspect]
     Dates: start: 20110404
  3. VALORON N [Concomitant]
  4. PREDNISONE [Concomitant]
  5. XIPAMIDE [Concomitant]
  6. METOPROLOL SUCCINATE [Concomitant]
  7. PANTOPRAZOLE SODIUM [Concomitant]
  8. HYDROCHLOROTHIAZIDE [Concomitant]
  9. ENALAPRIL [Concomitant]
  10. ALLOPURINOL [Concomitant]
  11. PROCHLORPERAZINE [Concomitant]
  12. BACTRIM [Concomitant]
  13. ENOXAPARIN SODIUM [Concomitant]
  14. CIPRALEX [Concomitant]

REACTIONS (5)
  - Thrombosis [Unknown]
  - Pelvic venous thrombosis [Recovered/Resolved]
  - Diarrhoea [Recovered/Resolved]
  - Vomiting [Recovered/Resolved]
  - Adverse event [Recovered/Resolved]
